FAERS Safety Report 22086392 (Version 2)
Quarter: 2023Q2

REPORT INFORMATION
  Report Type: Spontaneous
  Country: JP (occurrence: JP)
  Receive Date: 20230312
  Receipt Date: 20230509
  Transmission Date: 20230722
  Serious: Yes (Death)
  Sender: FDA-Public Use
  Company Number: JP-002147023-NVSJ2023JP004623

PATIENT
  Age: 52 Year
  Sex: Male

DRUGS (2)
  1. XYLOCAINE [Suspect]
     Active Substance: LIDOCAINE HYDROCHLORIDE
     Indication: Local anaesthesia
     Dosage: 10 ML 1 TUBE
     Route: 065
     Dates: start: 20211130, end: 20211130
  2. CEFAZOLIN [Concomitant]
     Active Substance: CEFAZOLIN
     Indication: Product used for unknown indication
     Dosage: 1 G
     Route: 042

REACTIONS (5)
  - Anaphylactic shock [Fatal]
  - Tryptase increased [Fatal]
  - Histamine level increased [Fatal]
  - Cardio-respiratory arrest [Fatal]
  - Ventricular fibrillation [Fatal]

NARRATIVE: CASE EVENT DATE: 20211130
